FAERS Safety Report 18208668 (Version 1)
Quarter: 2020Q3

REPORT INFORMATION
  Report Type: Spontaneous
  Country: US (occurrence: US)
  Receive Date: 20200828
  Receipt Date: 20200828
  Transmission Date: 20201103
  Serious: Yes (Other)
  Sender: FDA-Public Use
  Company Number: US-ASTRAZENECA-2020SF06989

PATIENT
  Sex: Female
  Weight: 97.5 kg

DRUGS (2)
  1. IMFINZI [Suspect]
     Active Substance: DURVALUMAB
     Indication: NON-SMALL CELL LUNG CANCER
     Dosage: UNKNOWN DOSE, EVERY TWO WEEKS
     Route: 042
     Dates: start: 20191226
  2. PREDNISONE. [Concomitant]
     Active Substance: PREDNISONE
     Route: 065

REACTIONS (8)
  - Cough [Not Recovered/Not Resolved]
  - Dyspnoea [Not Recovered/Not Resolved]
  - Lung disorder [Unknown]
  - Diarrhoea [Unknown]
  - Pneumonitis [Unknown]
  - Neoplasm recurrence [Unknown]
  - Weight decreased [Unknown]
  - Weight increased [Unknown]
